FAERS Safety Report 8928250 (Version 1)
Quarter: 2012Q4

REPORT INFORMATION
  Report Type: Spontaneous
  Country: US (occurrence: None)
  Receive Date: 20121126
  Receipt Date: 20121126
  Transmission Date: 20130627
  Serious: Yes (Disabling, Other)
  Sender: FDA-Public Use
  Company Number: None

PATIENT
  Age: 53 Year
  Sex: Female
  Weight: 110.68 kg

DRUGS (1)
  1. LEVOFLOXACIN 500 MG BICONVEX [Suspect]
     Indication: SINUS INFECTION
     Dosage: 1 tablet   daily   po
     Route: 048
     Dates: start: 20121026, end: 20121105

REACTIONS (5)
  - Pain [None]
  - Arthralgia [None]
  - Dysstasia [None]
  - Musculoskeletal disorder [None]
  - Tendon pain [None]
